FAERS Safety Report 16697529 (Version 1)
Quarter: 2019Q3

REPORT INFORMATION
  Report Type: Spontaneous
  Country: US (occurrence: US)
  Receive Date: 20190626
  Receipt Date: 20190626
  Transmission Date: 20191004
  Serious: No
  Sender: FDA-Public Use
  Company Number: None

PATIENT
  Age: 20 Year
  Sex: Female

DRUGS (1)
  1. GLEOSTINE [Suspect]
     Active Substance: LOMUSTINE
     Route: 011
     Dates: start: 201810

REACTIONS (3)
  - White blood cell count decreased [None]
  - Hepatic enzyme increased [None]
  - Weight decreased [None]

NARRATIVE: CASE EVENT DATE: 20190626
